FAERS Safety Report 5882559-0 (Version None)
Quarter: 2008Q3

REPORT INFORMATION
  Report Type: 
  Country: None (occurrence: None)
  Receive Date: 20080913
  Receipt Date: 20080811
  Transmission Date: 20090109
  Serious: No
  Sender: FDA-Public Use
  Company Number: US-ABBOTT-08P-163-0469648-00

PATIENT
  Sex: Female

DRUGS (6)
  1. HUMIRA [Suspect]
     Indication: CROHN'S DISEASE
     Route: 058
     Dates: start: 20080708, end: 20080708
  2. HUMIRA [Suspect]
     Route: 058
     Dates: start: 20080715, end: 20080715
  3. HUMIRA [Suspect]
     Route: 058
     Dates: start: 20080729
  4. PREDNISONE TAB [Concomitant]
     Indication: CROHN'S DISEASE
     Dosage: TITERED DOSAGE
     Route: 048
     Dates: end: 20080715
  5. PREDNISONE TAB [Concomitant]
     Dates: start: 20080812
  6. CHOLEZAL [Concomitant]
     Indication: CROHN'S DISEASE
     Route: 048

REACTIONS (1)
  - DIARRHOEA [None]
